FAERS Safety Report 24349877 (Version 1)
Quarter: 2024Q3

REPORT INFORMATION
  Report Type: Report from Study
  Country: RO (occurrence: RO)
  Receive Date: 20240923
  Receipt Date: 20240923
  Transmission Date: 20241017
  Serious: No
  Sender: ROCHE
  Company Number: RO-ROCHE-3491297

PATIENT
  Age: 68 Year
  Sex: Female
  Weight: 67.0 kg

DRUGS (1)
  1. HERCEPTIN [Suspect]
     Active Substance: TRASTUZUMAB
     Indication: Breast cancer
     Dosage: 1 VIAL SC RO 600 MG/5 ML/
     Route: 041

REACTIONS (2)
  - Nasopharyngitis [Unknown]
  - Weight decreased [Unknown]
